FAERS Safety Report 5344149-8 (Version None)
Quarter: 2007Q2

REPORT INFORMATION
  Report Type: 
  Country: None (occurrence: None)
  Receive Date: 20070604
  Receipt Date: 20070530
  Transmission Date: 20071010
  Serious: Yes (Death)
  Sender: FDA-Public Use
  Company Number: KR-SANOFI-SYNTHELABO-F01200700417

PATIENT
  Sex: Male
  Weight: 48.6 kg

DRUGS (10)
  1. PERPHENAZINE [Concomitant]
     Route: 048
     Dates: start: 20040106
  2. RANITIDINE [Concomitant]
     Route: 042
     Dates: start: 20040106, end: 20040106
  3. SEROTONE [Concomitant]
     Indication: NAUSEA
     Route: 042
     Dates: start: 20040106, end: 20040106
  4. SEROTONE [Concomitant]
     Indication: VOMITING
     Route: 042
     Dates: start: 20040106, end: 20040106
  5. LEUCOVORIN CALCIUM [Suspect]
     Route: 042
     Dates: start: 20040410, end: 20040410
  6. FLUOROURACIL [Suspect]
     Dosage: GIVEN OVER 24 HOURS
     Route: 042
     Dates: start: 20040410, end: 20040411
  7. OMEPRAZOLE [Concomitant]
     Indication: GASTRIC ULCER
     Dosage: 20 MG
     Route: 048
     Dates: start: 20040426, end: 20040426
  8. OXALIPLATIN [Suspect]
     Indication: GASTRIC CANCER
     Route: 042
     Dates: start: 20040410, end: 20040410
  9. ONDASETRON [Concomitant]
     Indication: NAUSEA
     Dosage: 16 MG
     Route: 048
     Dates: start: 20040426, end: 20040426
  10. ONDASETRON [Concomitant]
     Indication: VOMITING
     Dosage: 16 MG
     Route: 048
     Dates: start: 20040426, end: 20040426

REACTIONS (5)
  - DEATH [None]
  - HYPOVOLAEMIA [None]
  - METABOLIC ACIDOSIS [None]
  - SHOCK [None]
  - TUMOUR HAEMORRHAGE [None]
